FAERS Safety Report 24685310 (Version 1)
Quarter: 2024Q4

REPORT INFORMATION
  Report Type: Spontaneous
  Country: CA (occurrence: CA)
  Receive Date: 20241202
  Receipt Date: 20241202
  Transmission Date: 20250114
  Serious: Yes (Other)
  Sender: BAYER HEALTHCARE PHARMACEUTICALS INC.
  Company Number: CA-BAYER-2024A165213

PATIENT
  Sex: Male

DRUGS (18)
  1. CIPROFLOXACIN [Suspect]
     Active Substance: CIPROFLOXACIN
     Indication: Product used for unknown indication
  2. MOXIFLOXACIN [Suspect]
     Active Substance: MOXIFLOXACIN
     Indication: Mycobacterium fortuitum infection
     Dosage: 400 MG, QD
     Route: 048
  3. MOXIFLOXACIN [Suspect]
     Active Substance: MOXIFLOXACIN
     Indication: Arthritis infective
  4. AMIKACIN [Suspect]
     Active Substance: AMIKACIN
     Indication: Mycobacterium fortuitum infection
     Dosage: 1 DF, Q3WK
  5. AMIKACIN [Suspect]
     Active Substance: AMIKACIN
     Indication: Arthritis infective
     Dosage: 1 DF, QD
  6. LINEZOLID [Suspect]
     Active Substance: LINEZOLID
     Indication: Mycobacterium fortuitum infection
     Dosage: 600 MG, QD
  7. LINEZOLID [Suspect]
     Active Substance: LINEZOLID
     Indication: Arthritis infective
  8. IMIPENEM [Suspect]
     Active Substance: IMIPENEM
     Indication: Mycobacterium fortuitum infection
     Dosage: 1 DF, Q8HR
  9. IMIPENEM [Suspect]
     Active Substance: IMIPENEM
     Indication: Arthritis infective
  10. AZITHROMYCIN [Suspect]
     Active Substance: AZITHROMYCIN
     Indication: Product used for unknown indication
  11. RIFABUTIN [Suspect]
     Active Substance: RIFABUTIN
     Indication: Product used for unknown indication
  12. RIFAMPIN [Suspect]
     Active Substance: RIFAMPIN
     Indication: Product used for unknown indication
  13. ETHAMBUTOL [Suspect]
     Active Substance: ETHAMBUTOL HYDROCHLORIDE
     Indication: Product used for unknown indication
  14. SEPTRA [Suspect]
     Active Substance: SULFAMETHOXAZOLE\TRIMETHOPRIM
     Indication: Product used for unknown indication
  15. DOXYCYCLINE [Suspect]
     Active Substance: DOXYCYCLINE
     Indication: Product used for unknown indication
  16. SULFAMETHOXAZOLE [Suspect]
     Active Substance: SULFAMETHOXAZOLE
     Indication: Product used for unknown indication
  17. CEFOXITIN [Suspect]
     Active Substance: CEFOXITIN SODIUM
     Indication: Product used for unknown indication
  18. TIGECYCLINE [Suspect]
     Active Substance: TIGECYCLINE
     Indication: Product used for unknown indication

REACTIONS (5)
  - Haemoptysis [Unknown]
  - Bronchiectasis [Unknown]
  - Condition aggravated [Unknown]
  - Ototoxicity [None]
  - Pulmonary mass [Unknown]
